FAERS Safety Report 11552680 (Version 2)
Quarter: 2015Q4

REPORT INFORMATION
  Report Type: Spontaneous
  Country: JP (occurrence: JP)
  Receive Date: 20150925
  Receipt Date: 20151001
  Transmission Date: 20160304
  Serious: Yes (Other)
  Sender: FDA-Public Use
  Company Number: JP-009507513-1509JPN012802

PATIENT
  Age: 57 Year
  Sex: Female

DRUGS (5)
  1. DEXAMETHASONE. [Suspect]
     Active Substance: DEXAMETHASONE
     Indication: PLASMA CELL MYELOMA
     Dosage: DAILY DOSE UNKNOWN, UNKNOWN
     Route: 065
     Dates: start: 20140515
  2. MELPHALAN [Suspect]
     Active Substance: MELPHALAN
     Indication: PLASMA CELL MYELOMA
     Dosage: DAILY DOSE UNKNOWN, UNKNOWN
     Route: 065
     Dates: start: 20140414
  3. BORTEZOMIB [Concomitant]
     Active Substance: BORTEZOMIB
     Indication: PLASMA CELL MYELOMA
     Dosage: UNK UNK, UNKNOWN
     Route: 065
  4. LENALIDOMIDE [Concomitant]
     Active Substance: LENALIDOMIDE
     Indication: PLASMA CELL MYELOMA
     Dosage: DAILY DOSE UNKNOWN
     Route: 065
     Dates: start: 20140515
  5. ASPIRIN. [Concomitant]
     Active Substance: ASPIRIN
     Indication: THROMBOSIS PROPHYLAXIS
     Dosage: 100 MG, QD
     Route: 065

REACTIONS (3)
  - Rash [Unknown]
  - Liver injury [Unknown]
  - Embolism venous [Unknown]

NARRATIVE: CASE EVENT DATE: 20140507
